FAERS Safety Report 8949891 (Version 1)
Quarter: 2012Q4

REPORT INFORMATION
  Report Type: 
  Country: US (occurrence: US)
  Receive Date: 20121206
  Receipt Date: 20121206
  Transmission Date: 20130627
  Serious: Yes (Hospitalization)
  Sender: FDA-Public Use
  Company Number: US-PFIZER INC-2012288685

PATIENT
  Age: 74 Year
  Sex: Female
  Weight: 50.34 kg

DRUGS (17)
  1. DACOMITINIB [Suspect]
     Indication: NON-SMALL CELL LUNG CANCER NOS
     Dosage: Level 0, Once daily Continuous
     Route: 048
     Dates: start: 20121017, end: 20121111
  2. DACOMITINIB [Suspect]
     Indication: NON-SMALL CELL LUNG CANCER NOS
     Dosage: Level 0, Once daily Continuous
     Route: 048
     Dates: start: 20121017, end: 20121111
  3. ERLOTINIB [Suspect]
     Indication: NON-SMALL CELL LUNG CANCER NOS
     Dosage: Level 0, Once daily Continuous
     Route: 048
     Dates: start: 20121017, end: 20121111
  4. ERLOTINIB [Suspect]
     Indication: NON-SMALL CELL LUNG CANCER NOS
     Dosage: Level 0, Once daily Continuous
     Route: 048
     Dates: start: 20121017, end: 20121111
  5. BLINDED NO SUBJECT DRUG [Suspect]
     Indication: NON-SMALL CELL LUNG CANCER NOS
     Dosage: Level 0, Once daily Continuous
     Route: 048
     Dates: start: 20121017, end: 20121111
  6. PF-00299804 [Suspect]
     Indication: NON-SMALL CELL LUNG CANCER NOS
     Dosage: Level 0, Once daily Continuous
     Route: 048
     Dates: start: 20121017, end: 20121111
  7. PF-00299804 [Suspect]
     Indication: NON-SMALL CELL LUNG CANCER NOS
     Dosage: Level 0, Once daily Continuous
     Route: 048
     Dates: start: 20121017, end: 20121111
  8. BLINDED PLACEBO [Suspect]
     Indication: NON-SMALL CELL LUNG CANCER NOS
     Dosage: Level 0, Once daily Continuous
     Route: 048
     Dates: start: 20121017, end: 20121111
  9. BLINDED PLACEBO [Suspect]
     Indication: NON-SMALL CELL LUNG CANCER NOS
     Dosage: Level 0, Once daily Continuous
     Route: 048
     Dates: start: 20121017, end: 20121111
  10. DOXYCYCLINE HYCLATE [Suspect]
     Indication: RASH
     Dosage: 100 mg, 2x/day
     Route: 048
     Dates: start: 20121105, end: 20121107
  11. BACTRIM DS [Suspect]
     Indication: UTI
     Dosage: 800/160mg. BID
     Route: 048
     Dates: start: 20121024, end: 20121028
  12. COREG [Concomitant]
     Indication: ATRIAL FIBRILLATION
     Dosage: 6.5 mg, 2x/day
     Route: 048
     Dates: start: 201204
  13. ZOFRAN [Concomitant]
     Indication: NAUSEA
     Dosage: 4 mg, Q6hr
     Route: 048
     Dates: start: 20121024
  14. PROMETHAZINE [Concomitant]
     Indication: NAUSEA
     Dosage: 25 mg, Q6hr
     Route: 048
     Dates: start: 20121031
  15. LOMOTIL [Concomitant]
     Indication: DIARRHEA
     Dosage: 0.25-2.5 mg, BID
     Dates: start: 20121105
  16. WARFARIN [Concomitant]
     Indication: HEART VALVE REPLACEMENT
     Dosage: 7.5 mg, Tuesday, Thursday, Saturday
     Route: 048
     Dates: start: 2003
  17. WARFARIN [Concomitant]
     Dosage: 5 mg, Wednesday, Friday, Sunday
     Route: 048
     Dates: start: 2003

REACTIONS (1)
  - International normalised ratio increased [Recovered/Resolved]
